FAERS Safety Report 6508876-9 (Version None)
Quarter: 2009Q4

REPORT INFORMATION
  Report Type: 
  Country: None (occurrence: None)
  Receive Date: 20091221
  Receipt Date: 20090825
  Transmission Date: 20100525
  Serious: No
  Sender: FDA-Public Use
  Company Number: US-ASTRAZENECA-2009SE09737

PATIENT
  Age: 88 Year
  Sex: Female
  Weight: 56.7 kg

DRUGS (11)
  1. CRESTOR [Suspect]
     Indication: BLOOD CHOLESTEROL INCREASED
     Route: 048
     Dates: start: 20090426, end: 20090813
  2. LOPRESSOR [Concomitant]
  3. BETAPATE [Concomitant]
     Indication: HYPERTENSION
  4. VASOTEC [Concomitant]
  5. LANOXIN [Concomitant]
  6. AMBIEN [Concomitant]
     Indication: SLEEP DISORDER
  7. HYDROCHLOROTHIAZIDE [Concomitant]
  8. COUMADIN [Concomitant]
  9. LOVAZA [Concomitant]
  10. PROTONIX [Concomitant]
  11. MAG 64 [Concomitant]

REACTIONS (1)
  - BONE PAIN [None]
